FAERS Safety Report 7121581-3 (Version None)
Quarter: 2010Q4

REPORT INFORMATION
  Report Type: 
  Country: None (occurrence: None)
  Receive Date: 20101124
  Receipt Date: 20101115
  Transmission Date: 20110411
  Serious: Yes (Death, Hospitalization, Other)
  Sender: FDA-Public Use
  Company Number: US-ELI_LILLY_AND_COMPANY-US201009007922

PATIENT
  Sex: Male

DRUGS (14)
  1. FORTEO [Suspect]
     Indication: OSTEOPOROSIS
     Dosage: 20 UG, DAILY (1/D)
     Dates: start: 20100628
  2. CALCIUM [Concomitant]
  3. NIACIN [Concomitant]
     Dosage: 500 MG, DAILY (1/D)
  4. VITAMIN D [Concomitant]
     Dosage: 50000 U, WEEKLY (1/W)
  5. PAXIL [Concomitant]
     Dosage: 10 MG, DAILY (1/D)
  6. XANAX [Concomitant]
     Dosage: 0.25 MG, DAILY (1/D)
  7. SODIUM BICARBONATE [Concomitant]
     Dosage: 650 MG, 3/D
  8. PLAVIX [Concomitant]
     Dosage: 75 MG, DAILY (1/D)
  9. PROCHLORPERAZINE [Concomitant]
     Dosage: 5 MG, AS NEEDED
  10. ZOCOR [Concomitant]
     Dosage: 10 MG, DAILY (1/D)
  11. PREVACID [Concomitant]
     Dosage: 15 MG, DAILY (1/D)
  12. ASPIRIN [Concomitant]
     Dosage: 81 MG, DAILY (1/D)
  13. MEGESTROL ACETATE [Concomitant]
     Dosage: 40 MG, DAILY (1/D)
  14. MULTI-VITAMIN [Concomitant]

REACTIONS (4)
  - CARDIAC VALVE DISEASE [None]
  - DEATH [None]
  - PULMONARY OEDEMA [None]
  - URETHRAL CANCER METASTATIC [None]
